FAERS Safety Report 7194087-3 (Version None)
Quarter: 2010Q4

REPORT INFORMATION
  Report Type: 
  Country: None (occurrence: None)
  Receive Date: 20101223
  Receipt Date: 20101221
  Transmission Date: 20110411
  Serious: Yes (Hospitalization, Other)
  Sender: FDA-Public Use
  Company Number: US-US-EMD SERONO, INC.-7003436

PATIENT
  Sex: Male
  Weight: 78 kg

DRUGS (1)
  1. REBIF [Suspect]
     Indication: RELAPSING-REMITTING MULTIPLE SCLEROSIS
     Route: 058
     Dates: start: 20060711

REACTIONS (5)
  - CARDIAC ENZYMES INCREASED [None]
  - CHOLELITHIASIS [None]
  - HERNIA [None]
  - MUSCLE SPASMS [None]
  - TOTAL CHOLESTEROL/HDL RATIO DECREASED [None]
